FAERS Safety Report 5889059-2 (Version None)
Quarter: 2008Q3

REPORT INFORMATION
  Report Type: 
  Country: None (occurrence: None)
  Receive Date: 20080919
  Receipt Date: 20071023
  Transmission Date: 20090109
  Serious: No
  Sender: FDA-Public Use
  Company Number: US-KINGPHARMUSA00001-K200701375

PATIENT

DRUGS (4)
  1. SONATA [Suspect]
     Indication: INSOMNIA
     Dosage: 10 MG, PRN HS
     Route: 048
     Dates: start: 20050101, end: 20070901
  2. SYNTHROID [Concomitant]
  3. ALLERGY PILL UNSPECIFIED [Concomitant]
  4. BONIVA [Concomitant]

REACTIONS (1)
  - ALOPECIA [None]
